FAERS Safety Report 7815466-4 (Version None)
Quarter: 2011Q4

REPORT INFORMATION
  Report Type: 
  Country: None (occurrence: None)
  Receive Date: 20111014
  Receipt Date: 20110930
  Transmission Date: 20120403
  Serious: Yes (Other)
  Sender: FDA-Public Use
  Company Number: FR-ROCHE-793274

PATIENT
  Sex: Male

DRUGS (29)
  1. MYCOPHENOLATE MOFETIL (CELLCEPT) [Concomitant]
     Dates: start: 20110210
  2. LASIX [Concomitant]
     Dates: start: 20110120
  3. NEORECORMON [Concomitant]
     Dates: start: 20110728
  4. NEORECORMON [Concomitant]
     Dates: start: 20110901
  5. MIRCERA [Suspect]
  6. REPAGLINIDE [Concomitant]
     Dates: start: 20110120
  7. FERROUS SULFATE TAB [Concomitant]
     Dates: start: 20110210
  8. MIRCERA [Suspect]
  9. MIRCERA [Suspect]
  10. SOLUPRED (FRANCE) [Concomitant]
     Dates: start: 20110120
  11. BACTRIM [Concomitant]
     Dates: start: 20110120
  12. PERINDOPRIL ERBUMINE [Concomitant]
     Dates: start: 20110901
  13. NEXIUM [Concomitant]
     Dates: start: 20110120
  14. MIRCERA [Suspect]
     Indication: PRODUCT USED FOR UNKNOWN INDICATION
  15. PERINDOPRIL ERBUMINE [Concomitant]
     Dates: start: 20110728
  16. IRBESARTAN [Concomitant]
     Dates: start: 20110120
  17. ISRADIPINE [Concomitant]
     Dates: start: 20110120
  18. LASIX [Concomitant]
     Dates: start: 20110210
  19. TACROLIMUS [Concomitant]
     Dates: start: 20110210
  20. SOLUPRED (FRANCE) [Concomitant]
     Dates: start: 20110210
  21. MYCOPHENOLATE MOFETIL (CELLCEPT) [Concomitant]
     Dates: start: 20110120
  22. MYCOPHENOLATE MOFETIL (CELLCEPT) [Concomitant]
     Dates: start: 20110728
  23. MYCOPHENOLATE MOFETIL (CELLCEPT) [Concomitant]
     Dates: start: 20110809
  24. PERINDOPRIL ERBUMINE [Concomitant]
     Dates: start: 20110809
  25. MIRCERA [Suspect]
  26. MIRCERA [Suspect]
     Dates: start: 20110628, end: 20110726
  27. TACROLIMUS [Concomitant]
     Dates: start: 20110120
  28. TENORMIN [Concomitant]
     Dates: start: 20110120
  29. PERINDOPRIL ERBUMINE [Concomitant]
     Dates: start: 20110120

REACTIONS (1)
  - DRUG RESISTANCE [None]
